FAERS Safety Report 25168567 (Version 1)
Quarter: 2025Q2

REPORT INFORMATION
  Report Type: Spontaneous
  Country: GB (occurrence: GB)
  Receive Date: 20250407
  Receipt Date: 20250407
  Transmission Date: 20250716
  Serious: Yes (Other)
  Sender: B BRAUN
  Company Number: GB-B.Braun Medical Inc.-2174418

PATIENT
  Age: 56 Year
  Sex: Female
  Weight: 82 kg

DRUGS (5)
  1. METRONIDAZOLE [Suspect]
     Active Substance: METRONIDAZOLE
     Dates: start: 20250319
  2. CEPHALEXIN [Concomitant]
     Active Substance: CEPHALEXIN
  3. UPADACITINIB [Concomitant]
     Active Substance: UPADACITINIB
  4. VENLAFAXINE [Concomitant]
     Active Substance: VENLAFAXINE HYDROCHLORIDE
  5. METHOTREXATE SODIUM [Concomitant]
     Active Substance: METHOTREXATE SODIUM

REACTIONS (5)
  - Nausea [Not Recovered/Not Resolved]
  - Folliculitis [Not Recovered/Not Resolved]
  - Chromaturia [Not Recovered/Not Resolved]
  - Urine output [Not Recovered/Not Resolved]
  - Dysgeusia [Not Recovered/Not Resolved]
